FAERS Safety Report 17396767 (Version 4)
Quarter: 2021Q1

REPORT INFORMATION
  Report Type: Spontaneous
  Country: US (occurrence: US)
  Receive Date: 20200210
  Receipt Date: 20210211
  Transmission Date: 20210419
  Serious: No
  Sender: FDA-Public Use
  Company Number: US-PFIZER INC-2019552401

PATIENT
  Age: 60 Year
  Sex: Female

DRUGS (2)
  1. TOVIAZ [Suspect]
     Active Substance: FESOTERODINE FUMARATE
     Dosage: 1 MG, 2X/DAY
     Route: 048
  2. TOVIAZ [Suspect]
     Active Substance: FESOTERODINE FUMARATE
     Dosage: 16 MG (2 TABLETS OF 8 MG), DAILY
     Route: 048

REACTIONS (4)
  - Product prescribing error [Unknown]
  - Prescribed overdose [Unknown]
  - Drug ineffective [Unknown]
  - Off label use [Unknown]
